FAERS Safety Report 18549255 (Version 1)
Quarter: 2020Q4

REPORT INFORMATION
  Report Type: Spontaneous
  Country: US (occurrence: US)
  Receive Date: 20201126
  Receipt Date: 20201126
  Transmission Date: 20210114
  Serious: No
  Sender: FDA-Public Use
  Company Number: US-SA-2020SA341157

PATIENT

DRUGS (1)
  1. DUPIXENT [Suspect]
     Active Substance: DUPILUMAB
     Indication: DERMATITIS ATOPIC
     Dosage: 300 MG, QOW
     Route: 058
     Dates: start: 20200203

REACTIONS (5)
  - COVID-19 [Unknown]
  - Dyspnoea [Unknown]
  - Memory impairment [Unknown]
  - Diarrhoea [Unknown]
  - Body temperature increased [Unknown]

NARRATIVE: CASE EVENT DATE: 20201113
